FAERS Safety Report 5721209-0 (Version None)
Quarter: 2008Q2

REPORT INFORMATION
  Report Type: 
  Country: None (occurrence: None)
  Receive Date: 20080423
  Receipt Date: 20071008
  Transmission Date: 20081010
  Serious: Yes (Hospitalization)
  Sender: FDA-Public Use
  Company Number: 249080

PATIENT
  Age: 65 Year
  Sex: Male
  Weight: 59.4 kg

DRUGS (4)
  1. AVASTIN [Suspect]
     Indication: COLON CANCER
     Dosage: 1000 MG, Q3W, INTRAVENOUS
     Route: 042
     Dates: start: 20070809
  2. AVASTIN [Suspect]
  3. IRINOTECAN HCL [Concomitant]
  4. XELODA [Concomitant]

REACTIONS (1)
  - VENOUS THROMBOSIS [None]
